FAERS Safety Report 24813348 (Version 1)
Quarter: 2025Q1

REPORT INFORMATION
  Report Type: Spontaneous
  Country: FR (occurrence: FR)
  Receive Date: 20250107
  Receipt Date: 20250107
  Transmission Date: 20250408
  Serious: Yes (Other)
  Sender: AUROBINDO
  Company Number: FR-AFSSAPS-TS2024001640

PATIENT
  Age: 83 Year
  Sex: Male
  Weight: 88 kg

DRUGS (3)
  1. PANTOPRAZOLE [Suspect]
     Active Substance: PANTOPRAZOLE
     Indication: Product used for unknown indication
     Dosage: 40 MILLIGRAM, ONCE A DAY
     Route: 048
  2. AMOXICILLIN SODIUM [Suspect]
     Active Substance: AMOXICILLIN SODIUM
     Indication: Infection
     Dosage: 4 GRAM, FOUR TIMES/DAY
     Route: 042
     Dates: start: 20241212, end: 20241216
  3. RIFAMPIN [Suspect]
     Active Substance: RIFAMPIN
     Indication: Infection
     Dosage: 900 MILLIGRAM, ONCE A DAY
     Route: 048
     Dates: start: 20241213, end: 20241216

REACTIONS (2)
  - Acute kidney injury [Not Recovered/Not Resolved]
  - Crystalluria [Recovering/Resolving]

NARRATIVE: CASE EVENT DATE: 20241216
